FAERS Safety Report 15796527 (Version 1)
Quarter: 2019Q1

REPORT INFORMATION
  Report Type: Spontaneous
  Country: DE (occurrence: DE)
  Receive Date: 20190108
  Receipt Date: 20190108
  Transmission Date: 20190417
  Serious: Yes (Other)
  Sender: FDA-Public Use
  Company Number: DE-ABBVIE-18P-062-2599302-00

PATIENT
  Age: 54 Year
  Sex: Female

DRUGS (3)
  1. KREON 25000 [Concomitant]
     Active Substance: PANCRELIPASE
     Indication: PRODUCT USED FOR UNKNOWN INDICATION
     Dosage: REGIMEN: 1-2 WITH EVERY MEAL
     Route: 048
  2. SALBUHEXAL [Concomitant]
     Active Substance: ALBUTEROL
     Indication: ASTHMA
     Route: 055
     Dates: start: 1997
  3. KREON [Suspect]
     Active Substance: PANCRELIPASE
     Indication: PANCREATIC FAILURE
     Dosage: FREQUENCY: THREEFOLD DOSE WITH EVERY MEAL (1-3 DEPENDING ON MEAL)
     Route: 048

REACTIONS (5)
  - Flatulence [Recovered/Resolved]
  - Overdose [Unknown]
  - Product quality issue [Unknown]
  - Drug ineffective [Recovered/Resolved]
  - Steatorrhoea [Recovered/Resolved]

NARRATIVE: CASE EVENT DATE: 201810
